FAERS Safety Report 19589434 (Version 3)
Quarter: 2021Q3

REPORT INFORMATION
  Report Type: Spontaneous
  Country: US (occurrence: US)
  Receive Date: 20210721
  Receipt Date: 20210826
  Transmission Date: 20211014
  Serious: No
  Sender: FDA-Public Use
  Company Number: US-VERTEX PHARMACEUTICALS-2021-010825

PATIENT
  Age: 25 Year
  Sex: Female

DRUGS (11)
  1. TRIKAFTA [Suspect]
     Active Substance: ELEXACAFTOR\IVACAFTOR\TEZACAFTOR
     Indication: CYSTIC FIBROSIS
     Dosage: 2 TABLETS IN MORNING; 1 TABLET IN EVENING
     Route: 048
     Dates: start: 201912, end: 20200130
  2. TRIKAFTA [Suspect]
     Active Substance: ELEXACAFTOR\IVACAFTOR\TEZACAFTOR
     Dosage: 1 TABLET IN THE MORNING (REDUCED DOSE)
     Route: 048
     Dates: start: 20200205
  3. KITABIS PAK [Concomitant]
     Active Substance: TOBRAMYCIN
     Dosage: 300 MILLIGRAM, BID, ALTERNATE ON/OFF Q28 DAYS
     Route: 055
  4. FLONASE [Concomitant]
     Active Substance: FLUTICASONE PROPIONATE
     Dosage: 2 SPRAYS INTO BOTH NOSTRILS ONCE DAILY
     Route: 045
  5. URSO FORTE [Concomitant]
     Active Substance: URSODIOL
     Dosage: TAKE 0.5 TABS (250MG) TWO TIMES DAILY
     Route: 048
  6. PULMOZYME [Concomitant]
     Active Substance: DORNASE ALFA
     Dosage: 2.5 MILLILITER, QD
     Route: 055
  7. BOOST PLUS [Concomitant]
     Active Substance: DIETARY SUPPLEMENT
     Dosage: 0.06 GRAM?15KCAL/ML, TAKE ONE BOTTLE TWO TIMES
     Route: 048
  8. XOPENEX HFA [Concomitant]
     Active Substance: LEVALBUTEROL TARTRATE
     Dosage: 1?2 INHALATIONS INTO LUNGS EVERY 6 HOURS
  9. TOBI [Concomitant]
     Active Substance: TOBRAMYCIN
     Dosage: 5 MILLILITER, BID, FOR 30 DAYS. ALTERNATE ON/OFF OOM WITH CAYSTON
     Route: 055
  10. ZITHROMAX [Concomitant]
     Active Substance: AZITHROMYCIN DIHYDRATE
     Dosage: 500 MILLIGRAM, TAKE ONE TABLET EVERY MON, WED AND FRI
     Route: 048
  11. ZENPEP [Concomitant]
     Active Substance: PANCRELIPASE AMYLASE\PANCRELIPASE LIPASE\PANCRELIPASE PROTEASE
     Dosage: 40,000?126,000?168,000 UNITS DR
     Route: 048

REACTIONS (4)
  - Anxiety [Unknown]
  - Chest discomfort [Unknown]
  - Tachycardia [Unknown]
  - Mental disorder [Not Recovered/Not Resolved]

NARRATIVE: CASE EVENT DATE: 202001
